FAERS Safety Report 5758382-4 (Version None)
Quarter: 2008Q2

REPORT INFORMATION
  Report Type: 
  Country: None (occurrence: None)
  Receive Date: 20080530
  Receipt Date: 20080520
  Transmission Date: 20081010
  Serious: Yes (Hospitalization)
  Sender: FDA-Public Use
  Company Number: GXKR2008IL04636

PATIENT
  Age: 80 Year
  Sex: Male

DRUGS (8)
  1. CLARITHROMYCIN [Suspect]
     Indication: HELICOBACTER INFECTION
     Dosage: 500 MG, BID
  2. REPAGLINIDE [Suspect]
     Dosage: 0.5 MG, TID
  3. AMLODIPINE [Concomitant]
  4. ACETYLSALICYLIC ACID SRT [Concomitant]
  5. OMEPRAZOLE [Concomitant]
  6. FUROSEMIDE [Concomitant]
  7. CITALOPRAM HYDROBROMIDE [Concomitant]
  8. AMOXICILLIN [Concomitant]

REACTIONS (3)
  - DRUG INTERACTION [None]
  - HYPOGLYCAEMIA [None]
  - UNRESPONSIVE TO STIMULI [None]
